FAERS Safety Report 7725406-4 (Version None)
Quarter: 2011Q3

REPORT INFORMATION
  Report Type: 
  Country: None (occurrence: None)
  Receive Date: 20110902
  Receipt Date: 20110830
  Transmission Date: 20111222
  Serious: No
  Sender: FDA-Public Use
  Company Number: US-PFIZER INC-2011203445

PATIENT
  Sex: Female
  Weight: 45 kg

DRUGS (5)
  1. LYRICA [Suspect]
     Indication: MUSCLE TIGHTNESS
  2. AMLODIPINE [Concomitant]
     Indication: HYPERTENSION
     Dosage: 2.5 MG DAILY
  3. BENICAR [Concomitant]
     Indication: HYPERTENSION
     Dosage: 20 MG DAILY
     Route: 048
  4. LYRICA [Suspect]
     Indication: NERVE COMPRESSION
     Dosage: 25 MG, DAILY
     Route: 048
     Dates: start: 20110413
  5. LYRICA [Suspect]
     Indication: PARAESTHESIA

REACTIONS (2)
  - FATIGUE [None]
  - SOMNOLENCE [None]
